FAERS Safety Report 13324603 (Version 3)
Quarter: 2018Q1

REPORT INFORMATION
  Report Type: Spontaneous
  Country: US (occurrence: US)
  Receive Date: 20170310
  Receipt Date: 20180129
  Transmission Date: 20180508
  Serious: Yes (Other)
  Sender: FDA-Public Use
  Company Number: US-BRISTOL-MYERS SQUIBB COMPANY-BMS-2017-016084

PATIENT
  Age: 64 Year
  Sex: Female

DRUGS (2)
  1. TRIAMCINOLONE ACETONIDE. [Suspect]
     Active Substance: TRIAMCINOLONE ACETONIDE
     Indication: TENDONITIS
     Dosage: 1 ML, UNK
     Route: 065
  2. TRIAMCINOLONE ACETONIDE. [Suspect]
     Active Substance: TRIAMCINOLONE ACETONIDE
     Indication: PRODUCT USED FOR UNKNOWN INDICATION
     Dosage: 0.5 ML, UNK
     Route: 065

REACTIONS (5)
  - Telangiectasia [Recovering/Resolving]
  - Injection site extravasation [Recovering/Resolving]
  - Purpura [Recovering/Resolving]
  - Injection site atrophy [Recovering/Resolving]
  - Vascular fragility [Recovering/Resolving]
